FAERS Safety Report 4455708-9 (Version None)
Quarter: 2004Q3

REPORT INFORMATION
  Report Type: 
  Country: None (occurrence: None)
  Receive Date: 20040917
  Receipt Date: 20040901
  Transmission Date: 20050211
  Serious: Yes (Other)
  Sender: FDA-Public Use
  Company Number: USA040977204

PATIENT
  Age: 76 Year
  Sex: Female

DRUGS (5)
  1. FORTEO [Suspect]
     Indication: OSTEOPOROSIS
     Dosage: 20 UG/1 DAY
     Dates: start: 20040601
  2. LEXAPRO [Concomitant]
  3. PROTONIX [Concomitant]
  4. RANITIDINE [Concomitant]
  5. AVANDIA [Concomitant]

REACTIONS (6)
  - DIZZINESS [None]
  - FALL [None]
  - FEELING HOT [None]
  - HEAD INJURY [None]
  - LOSS OF CONSCIOUSNESS [None]
  - PHARMACEUTICAL PRODUCT COMPLAINT [None]
